FAERS Safety Report 4587507-1 (Version None)
Quarter: 2005Q1

REPORT INFORMATION
  Report Type: 
  Country: None (occurrence: None)
  Receive Date: 20050215
  Receipt Date: 20050131
  Transmission Date: 20050727
  Serious: Yes (Death, Hospitalization)
  Sender: FDA-Public Use
  Company Number: 2005S1000354

PATIENT
  Age: 58 Year
  Sex: Male

DRUGS (6)
  1. CLOZAPINE [Suspect]
     Indication: SCHIZOPHRENIA, PARANOID TYPE
     Dosage: 50 MG  QD, ORAL
     Route: 048
     Dates: start: 20041221
  2. CLOZAPINE [Suspect]
     Indication: DRUG RESISTANCE
     Dosage: 300 MG QD, ORAL
     Route: 048
     Dates: start: 20041221
  3. CLOZAPINE [Suspect]
     Indication: SCHIZOPHRENIA, PARANOID TYPE
     Dosage: 300 MG QD, ORAL
     Route: 048
     Dates: start: 20041221
  4. QUETIAPINE FUMARATE [Concomitant]
  5. RISPERIDONE [Concomitant]
  6. CLONAZEPAM [Concomitant]

REACTIONS (6)
  - BRONCHITIS ACUTE [None]
  - DYSPHAGIA [None]
  - INFLUENZA [None]
  - LEUKOPENIA [None]
  - PNEUMONIA ASPIRATION [None]
  - SEPSIS [None]
